FAERS Safety Report 5094554-2 (Version None)
Quarter: 2006Q3

REPORT INFORMATION
  Report Type: 
  Country: None (occurrence: None)
  Receive Date: 20060731
  Receipt Date: 20060424
  Transmission Date: 20061208
  Serious: No
  Sender: FDA-Public Use
  Company Number: 2006PV012603

PATIENT
  Age: 57 Year
  Sex: Female
  Weight: 98.4306 kg

DRUGS (2)
  1. BYETTA [Suspect]
     Indication: INSULIN RESISTANT DIABETES
     Dosage: 10 MCG; BID; SC; SEE IMAGE
     Route: 058
     Dates: start: 20060313, end: 20060414
  2. BYETTA [Suspect]
     Indication: INSULIN RESISTANT DIABETES
     Dosage: 10 MCG; BID; SC; SEE IMAGE
     Route: 058
     Dates: start: 20060415

REACTIONS (3)
  - BLADDER DISORDER [None]
  - INCREASED APPETITE [None]
  - WEIGHT DECREASED [None]
